FAERS Safety Report 15891164 (Version 1)
Quarter: 2019Q1

REPORT INFORMATION
  Report Type: Spontaneous
  Country: FR (occurrence: FR)
  Receive Date: 20190130
  Receipt Date: 20190130
  Transmission Date: 20190417
  Serious: Yes (Other)
  Sender: FDA-Public Use
  Company Number: FR-MYLANLABS-2019M1007849

PATIENT
  Sex: Female

DRUGS (4)
  1. NEULASTA [Concomitant]
     Active Substance: PEGFILGRASTIM
     Route: 065
  2. GRANOCYTE [Concomitant]
     Active Substance: LENOGRASTIM
  3. EPIRUBICIN [Suspect]
     Active Substance: EPIRUBICIN
     Indication: PRODUCT USED FOR UNKNOWN INDICATION
     Dosage: 1 EVERY 2 WEEKS (PROTOCOL EPIRUBICIN-CYCLOPHOSPHAMIDE, SCHEDULED FOR 4 CYCLES
     Route: 065
  4. CYCLOPHOSPHAMIDE. [Concomitant]
     Active Substance: CYCLOPHOSPHAMIDE
     Route: 065

REACTIONS (5)
  - Myalgia [Unknown]
  - Oxygen saturation decreased [Unknown]
  - Insomnia [Unknown]
  - Cardiac disorder [Unknown]
  - Arthralgia [Unknown]
